FAERS Safety Report 10218798 (Version 2)
Quarter: 2014Q2

REPORT INFORMATION
  Report Type: Spontaneous
  Country: JP (occurrence: JP)
  Receive Date: 20140605
  Receipt Date: 20140605
  Transmission Date: 20141212
  Serious: Yes (Hospitalization)
  Sender: FDA-Public Use
  Company Number: JP-SA-2013-08445

PATIENT
  Age: 69 Year
  Sex: Male

DRUGS (3)
  1. IMMUCYST [Suspect]
     Indication: BLADDER CANCER RECURRENT
     Dosage: START THERAPY DATE TEXT : NOT REPORTED?DAILY DOSE TEXT : NOT REPORTED
     Route: 043
  2. BCG (CONNAUGHT) VACCINE [Suspect]
     Indication: BLADDER CANCER
     Route: 043
  3. LEVOFLOXACIN [Concomitant]
     Route: 048

REACTIONS (3)
  - Epididymitis tuberculous [Recovered/Resolved]
  - Scrotal swelling [Recovered/Resolved]
  - Epididymitis [Recovered/Resolved]
